FAERS Safety Report 8391228 (Version 8)
Quarter: 2013Q4

REPORT INFORMATION
  Report Type: Spontaneous
  Country: JP (occurrence: JP)
  Receive Date: 20120206
  Receipt Date: 20131018
  Transmission Date: 20140711
  Serious: Yes (Hospitalization, Other)
  Sender: FDA-Public Use
  Company Number: JP-JNJFOC-20120112124

PATIENT
  Age: 67 Year
  Sex: Female
  Weight: 43 kg

DRUGS (12)
  1. REMICADE [Suspect]
     Indication: COLITIS ULCERATIVE
     Dosage: 8 TH INFUSION
     Route: 042
  2. REMICADE [Suspect]
     Indication: COLITIS ULCERATIVE
     Dosage: 8TH DOSE
     Route: 042
     Dates: start: 20111020
  3. REMICADE [Suspect]
     Indication: COLITIS ULCERATIVE
     Route: 042
     Dates: start: 20101116
  4. REMICADE [Suspect]
     Indication: COLITIS ULCERATIVE
     Route: 042
     Dates: start: 201010
  5. THYRADIN S [Concomitant]
     Indication: THYROID DISORDER
     Route: 048
  6. MIYA BM [Concomitant]
     Indication: DIARRHOEA
     Dosage: TOTAL DOSE: 3 TABLETS, DAILY DOSE: 1 TABLET
     Route: 048
  7. PARIET [Concomitant]
     Indication: GASTROOESOPHAGEAL REFLUX DISEASE
     Route: 048
  8. IMURAN [Concomitant]
     Indication: COLITIS ULCERATIVE
     Route: 048
     Dates: end: 20111115
  9. ASACOL [Concomitant]
     Indication: COLITIS ULCERATIVE
     Dosage: INDIVIDUAL DOSE: 1200MG
     Route: 048
     Dates: end: 20111222
  10. TENORMIN [Concomitant]
     Indication: HYPERTENSION
     Route: 048
  11. EXFORGE [Concomitant]
     Indication: HYPERTENSION
     Route: 048
  12. DEPAS [Concomitant]
     Indication: PSYCHOSOMATIC DISEASE
     Route: 048

REACTIONS (5)
  - Pyoderma gangrenosum [Recovered/Resolved]
  - Pyrexia [Recovering/Resolving]
  - Cellulitis [Unknown]
  - Tenosynovitis [Unknown]
  - Colitis ulcerative [Recovering/Resolving]
